FAERS Safety Report 4595343-5 (Version None)
Quarter: 2005Q1

REPORT INFORMATION
  Report Type: 
  Country: None (occurrence: None)
  Receive Date: 20050225
  Receipt Date: 20050225
  Transmission Date: 20050727
  Serious: Yes (Disabling)
  Sender: FDA-Public Use
  Company Number: None

PATIENT
  Age: 39 Year
  Sex: Male
  Weight: 81.6475 kg

DRUGS (2)
  1. ZOLOFT [Suspect]
     Indication: DEPRESSION
     Dosage: 200 MGS   ORAL
     Route: 048
     Dates: start: 19970807, end: 20050224
  2. ZOLOFT [Suspect]
     Indication: OBSESSIVE-COMPULSIVE DISORDER
     Dosage: 200 MGS   ORAL
     Route: 048
     Dates: start: 19970807, end: 20050224

REACTIONS (12)
  - AKATHISIA [None]
  - ANGER [None]
  - CONDITION AGGRAVATED [None]
  - DEPERSONALISATION [None]
  - DEPRESSION [None]
  - DIZZINESS [None]
  - DRUG DEPENDENCE [None]
  - DRUG WITHDRAWAL SYNDROME [None]
  - FATIGUE [None]
  - INFLUENZA LIKE ILLNESS [None]
  - MYALGIA [None]
  - OBSESSIVE-COMPULSIVE DISORDER [None]
